FAERS Safety Report 12337426 (Version 2)
Quarter: 2016Q2

REPORT INFORMATION
  Report Type: Spontaneous
  Country: SK (occurrence: SK)
  Receive Date: 20160505
  Receipt Date: 20160509
  Transmission Date: 20160815
  Serious: Yes (Other)
  Sender: FDA-Public Use
  Company Number: SK-ELI_LILLY_AND_COMPANY-SK201408003784

PATIENT
  Age: 50 Year
  Sex: Male
  Weight: 63 kg

DRUGS (2)
  1. ZYPREXA [Suspect]
     Active Substance: OLANZAPINE
     Dosage: 1.25 MG, QD
     Route: 065
     Dates: start: 200709, end: 20080215
  2. ZYPREXA [Suspect]
     Active Substance: OLANZAPINE
     Indication: PSYCHOTIC DISORDER
     Dosage: 2.5 MG, QD
     Route: 065
     Dates: start: 200705, end: 200709

REACTIONS (57)
  - Dysgraphia [Unknown]
  - Bradyphrenia [Not Recovered/Not Resolved]
  - Dyspnoea [Not Recovered/Not Resolved]
  - Paraesthesia [Unknown]
  - Tendon pain [Unknown]
  - Bladder irritation [Unknown]
  - Feeling abnormal [Not Recovered/Not Resolved]
  - Restlessness [Unknown]
  - Somnolence [Unknown]
  - Speech disorder [Not Recovered/Not Resolved]
  - Feeling abnormal [Unknown]
  - Anxiety [Recovered/Resolved]
  - Paraesthesia [Not Recovered/Not Resolved]
  - Psychotic disorder [Unknown]
  - Tinnitus [Unknown]
  - Disturbance in attention [Unknown]
  - Memory impairment [Not Recovered/Not Resolved]
  - Fibromyalgia [Unknown]
  - Irritable bowel syndrome [Unknown]
  - Suicidal ideation [Recovered/Resolved]
  - Self esteem decreased [Not Recovered/Not Resolved]
  - Headache [Not Recovered/Not Resolved]
  - Sleep disorder [Not Recovered/Not Resolved]
  - Feeling abnormal [Unknown]
  - Cardiac fibrillation [Unknown]
  - Abdominal pain [Unknown]
  - Diarrhoea [Unknown]
  - Toothache [Unknown]
  - Musculoskeletal stiffness [Not Recovered/Not Resolved]
  - Myalgia [Not Recovered/Not Resolved]
  - Thirst [Unknown]
  - Temperature regulation disorder [Unknown]
  - Dizziness [Unknown]
  - Constipation [Unknown]
  - Decreased interest [Unknown]
  - Skin disorder [Not Recovered/Not Resolved]
  - Lethargy [Unknown]
  - Apathy [Unknown]
  - Hypometabolism [Unknown]
  - Palpitations [Unknown]
  - Visual impairment [Not Recovered/Not Resolved]
  - Prescribed underdose [Unknown]
  - Anxiety [Unknown]
  - Sensory level abnormal [Unknown]
  - Insomnia [Unknown]
  - Weight increased [Recovered/Resolved]
  - Aptyalism [Unknown]
  - Cardiovascular disorder [Unknown]
  - Hormone level abnormal [Unknown]
  - Depression [Recovered/Resolved]
  - Depression [Unknown]
  - Brain injury [Unknown]
  - Lacrimation increased [Unknown]
  - Mental impairment [Not Recovered/Not Resolved]
  - Myalgia [Unknown]
  - Learning disorder [Not Recovered/Not Resolved]
  - Drug withdrawal syndrome [Unknown]

NARRATIVE: CASE EVENT DATE: 200704
